FAERS Safety Report 16935904 (Version 1)
Quarter: 2019Q4

REPORT INFORMATION
  Report Type: Spontaneous
  Country: RO (occurrence: RO)
  Receive Date: 20191018
  Receipt Date: 20191018
  Transmission Date: 20200122
  Serious: Yes (Other)
  Sender: FDA-Public Use
  Company Number: RO-ROCHE-2434964

PATIENT
  Age: 65 Year
  Sex: Male

DRUGS (6)
  1. AVASTIN [Suspect]
     Active Substance: BEVACIZUMAB
     Route: 065
     Dates: start: 201603, end: 201904
  2. XELIRI [Concomitant]
     Indication: COLON CANCER METASTATIC
     Dosage: NO
     Route: 065
     Dates: start: 201806, end: 201904
  3. FOLFOX [Suspect]
     Active Substance: FLUOROURACIL\LEUCOVORIN CALCIUM\OXALIPLATIN
     Indication: COLON CANCER METASTATIC
     Dosage: NO
     Route: 065
     Dates: start: 201401, end: 201405
  4. AVASTIN [Suspect]
     Active Substance: BEVACIZUMAB
     Indication: COLON CANCER METASTATIC
     Route: 065
     Dates: start: 201401, end: 201405
  5. FOLFOX [Suspect]
     Active Substance: FLUOROURACIL\LEUCOVORIN CALCIUM\OXALIPLATIN
     Route: 065
     Dates: start: 201407
  6. CAPECITABINE. [Suspect]
     Active Substance: CAPECITABINE
     Indication: COLON CANCER METASTATIC
     Route: 048
     Dates: start: 201603, end: 201806

REACTIONS (2)
  - Neurotoxicity [Unknown]
  - Disease progression [Unknown]
